FAERS Safety Report 18249973 (Version 1)
Quarter: 2020Q3

REPORT INFORMATION
  Report Type: Spontaneous
  Country: US (occurrence: US)
  Receive Date: 20200909
  Receipt Date: 20200909
  Transmission Date: 20201103
  Serious: No
  Sender: FDA-Public Use
  Company Number: US-BAYER-2020-187611

PATIENT
  Sex: Female
  Weight: 54.42 kg

DRUGS (3)
  1. SYNTHROID [Concomitant]
     Active Substance: LEVOTHYROXINE SODIUM
     Dosage: UNK
  2. CELEXA [CELECOXIB] [Concomitant]
     Active Substance: CELECOXIB
     Indication: ADJUSTMENT DISORDER WITH DEPRESSED MOOD
     Dosage: 10 MG, QD
  3. CLIMARA [Suspect]
     Active Substance: ESTRADIOL
     Dosage: 1 DF, OW
     Route: 062
     Dates: start: 2018, end: 2018

REACTIONS (1)
  - Stress [None]

NARRATIVE: CASE EVENT DATE: 2018
